APPROVED DRUG PRODUCT: AMLODIPINE BESYLATE AND BENAZEPRIL HYDROCHLORIDE
Active Ingredient: AMLODIPINE BESYLATE; BENAZEPRIL HYDROCHLORIDE
Strength: EQ 5MG BASE;10MG
Dosage Form/Route: CAPSULE;ORAL
Application: A078466 | Product #002 | TE Code: AB
Applicant: LUPIN PHARMACEUTICALS INC
Approved: Feb 5, 2010 | RLD: No | RS: No | Type: RX